FAERS Safety Report 11840472 (Version 2)
Quarter: 2016Q1

REPORT INFORMATION
  Report Type: Report from Study
  Country: US (occurrence: US)
  Receive Date: 20151216
  Receipt Date: 20160216
  Transmission Date: 20160525
  Serious: Yes (Other)
  Sender: FDA-Public Use
  Company Number: US-SA-2015SA145216

PATIENT
  Age: 48 Year
  Sex: Female
  Weight: 113.39 kg

DRUGS (25)
  1. METHYLPREDNISOLONE SODIUM SUCCINATE. [Concomitant]
     Active Substance: METHYLPREDNISOLONE SODIUM SUCCINATE
  2. ASPIRIN. [Concomitant]
     Active Substance: ASPIRIN
     Route: 048
  3. PRAMIPEXOLE DIHYDROCHLORIDE. [Concomitant]
     Active Substance: PRAMIPEXOLE DIHYDROCHLORIDE
     Route: 048
  4. LISINOPRIL. [Concomitant]
     Active Substance: LISINOPRIL
     Route: 048
  5. VICODIN [Concomitant]
     Active Substance: ACETAMINOPHEN\HYDROCODONE BITARTRATE
     Route: 048
     Dates: start: 20150806
  6. HYDROXYZINE HYDROCHLORIDE. [Concomitant]
     Active Substance: HYDROXYZINE HYDROCHLORIDE
     Route: 048
     Dates: start: 20150806
  7. IBUPROFEN. [Concomitant]
     Active Substance: IBUPROFEN
  8. ZOFRAN [Concomitant]
     Active Substance: ONDANSETRON HYDROCHLORIDE
     Route: 048
     Dates: start: 20150806
  9. VITAMIN D3 [Concomitant]
     Active Substance: CHOLECALCIFEROL
     Route: 048
  10. LEMTRADA [Suspect]
     Active Substance: ALEMTUZUMAB
     Indication: MULTIPLE SCLEROSIS
     Route: 041
     Dates: start: 20150831, end: 20150904
  11. TYLENOL [Concomitant]
     Active Substance: ACETAMINOPHEN
     Indication: PREMEDICATION
     Route: 048
     Dates: start: 2015
  12. NITROFURANTOIN. [Concomitant]
     Active Substance: NITROFURANTOIN
     Route: 048
  13. OMEPRAZOLE. [Concomitant]
     Active Substance: OMEPRAZOLE
     Route: 048
  14. AMPYRA [Concomitant]
     Active Substance: DALFAMPRIDINE
     Route: 048
  15. SOLU-MEDROL [Concomitant]
     Active Substance: METHYLPREDNISOLONE SODIUM SUCCINATE
     Indication: PREMEDICATION
     Dates: start: 2015
  16. SIMVASTATIN. [Concomitant]
     Active Substance: SIMVASTATIN
     Dosage: FREQUENCY: QHS
     Route: 048
  17. EPIPEN [Concomitant]
     Active Substance: EPINEPHRINE
     Dates: start: 20150806
  18. FISH OIL [Concomitant]
     Active Substance: FISH OIL
     Route: 048
  19. ESCITALOPRAM [Concomitant]
     Active Substance: ESCITALOPRAM OXALATE
     Route: 048
  20. ACYCLOVIR. [Concomitant]
     Active Substance: ACYCLOVIR
     Route: 048
     Dates: start: 20150806
  21. ACETAMINOPHEN. [Concomitant]
     Active Substance: ACETAMINOPHEN
     Dosage: EVERY 4-6 HOURS
  22. VERAPAMIL [Concomitant]
     Active Substance: VERAPAMIL HYDROCHLORIDE
     Route: 048
  23. ACYCLOVIR. [Concomitant]
     Active Substance: ACYCLOVIR
     Route: 048
  24. FUROSEMIDE. [Concomitant]
     Active Substance: FUROSEMIDE
     Route: 048
  25. ACETAMINOPHEN. [Concomitant]
     Active Substance: ACETAMINOPHEN

REACTIONS (4)
  - Cystitis klebsiella [Unknown]
  - Rash [Recovered/Resolved]
  - Asthenia [Recovering/Resolving]
  - Contusion [Recovering/Resolving]

NARRATIVE: CASE EVENT DATE: 2015
